FAERS Safety Report 4725014-3 (Version None)
Quarter: 2005Q3

REPORT INFORMATION
  Report Type: 
  Country: None (occurrence: None)
  Receive Date: 20050722
  Receipt Date: 20050712
  Transmission Date: 20060218
  Serious: Yes (Other)
  Sender: FDA-Public Use
  Company Number: 2005092857

PATIENT
  Age: 34 Year
  Sex: Female

DRUGS (6)
  1. VIRACEPT [Suspect]
     Indication: HIV TEST POSITIVE
     Dosage: 2500 MG (625 MG, BID), ORAL
     Route: 048
     Dates: start: 20050401
  2. COMBIVIR [Suspect]
     Indication: HIV TEST POSITIVE
     Dosage: (2 IN 1 D), ORAL
     Route: 048
     Dates: start: 20030101, end: 20050310
  3. COMBIVIR [Suspect]
     Indication: HIV TEST POSITIVE
     Dosage: (2 IN 1 D), ORAL
     Route: 048
     Dates: start: 20050401
  4. VIRAMUNE [Suspect]
     Indication: HIV TEST POSITIVE
     Dosage: 400 MG (200 MG, 2 IN 1 D), ORAL
     Route: 048
     Dates: start: 20030101, end: 20050310
  5. VIRAMUNE [Suspect]
     Indication: HIV TEST POSITIVE
     Dosage: 400 MG (200 MG, 2 IN 1 D), ORAL
     Route: 048
     Dates: start: 20050401
  6. SUSTIVA [Suspect]
     Indication: HIV TEST POSITIVE
     Dosage: 600 MG (600 MG, EVERY NIGHT), ORAL
     Route: 048
     Dates: start: 20030101, end: 20050310

REACTIONS (3)
  - ABORTION SPONTANEOUS [None]
  - DRUG EXPOSURE DURING PREGNANCY [None]
  - RETAINED PRODUCTS OF CONCEPTION [None]
